FAERS Safety Report 17325937 (Version 7)
Quarter: 2020Q4

REPORT INFORMATION
  Report Type: Spontaneous
  Country: US (occurrence: US)
  Receive Date: 20200127
  Receipt Date: 20201013
  Transmission Date: 20210113
  Serious: No
  Sender: FDA-Public Use
  Company Number: US-PFIZER INC-2020035593

PATIENT
  Age: 58 Year
  Sex: Male

DRUGS (3)
  1. PRISTIQ EXTENDED-RELEASE [Suspect]
     Active Substance: DESVENLAFAXINE SUCCINATE
     Indication: MAJOR DEPRESSION
     Dosage: 200 MG, DAILY (50 MG TABLET 4 TABLETS BY MOUTH DAILY)
     Route: 048
  2. CYMBALTA [Concomitant]
     Active Substance: DULOXETINE HYDROCHLORIDE
     Dosage: UNK
  3. PRISTIQ EXTENDED-RELEASE [Suspect]
     Active Substance: DESVENLAFAXINE SUCCINATE
     Indication: POST-TRAUMATIC STRESS DISORDER
     Dosage: 300 MG, ONCE A DAY (100 MG TABLET, TAKE 3 (THREE) TABLET BY MOUTH EVERY MORNING)
     Route: 048

REACTIONS (3)
  - Hypoacusis [Unknown]
  - Prescribed overdose [Unknown]
  - Nervousness [Unknown]
